FAERS Safety Report 12976667 (Version 1)
Quarter: 2016Q4

REPORT INFORMATION
  Report Type: Report from Study
  Country: PL (occurrence: PL)
  Receive Date: 20161128
  Receipt Date: 20161128
  Transmission Date: 20170207
  Serious: Yes (Disabling)
  Sender: FDA-Public Use
  Company Number: PHHO2010PL023674

PATIENT
  Age: 59 Year
  Sex: Female
  Weight: 82 kg

DRUGS (12)
  1. CHLORAMBUCIL [Suspect]
     Active Substance: CHLORAMBUCIL
     Indication: CHRONIC LYMPHOCYTIC LEUKAEMIA
     Dosage: 10 MG/M2 (18 MG), CYCLIC (CUMULATIVE DOSE 126 MG)
     Route: 048
     Dates: start: 20090817, end: 20090823
  2. CHLORAMBUCIL [Suspect]
     Active Substance: CHLORAMBUCIL
     Dosage: 10 MG/M2 (18 MG), CYCLIC (CUMULATIVE DOSE 252 MG)
     Route: 048
     Dates: start: 20090914, end: 20090920
  3. CALPEROS [Concomitant]
     Active Substance: CALCIUM CARBONATE
     Indication: OSTEOPOROSIS PROPHYLAXIS
     Dosage: 500 MG, BID
     Route: 048
     Dates: start: 20100415
  4. CHLORAMBUCIL [Suspect]
     Active Substance: CHLORAMBUCIL
     Dosage: 10 MG/M2 (14 MG), CYCLIC (CUMULATIVE DOSE 980 MG)
     Route: 048
     Dates: start: 20100317, end: 20100323
  5. ORTANOL [Concomitant]
     Active Substance: OMEPRAZOLE
     Indication: GASTRITIS PROPHYLAXIS
     Dosage: 20 MG, QD
     Route: 048
     Dates: start: 20100415, end: 20120203
  6. CHLORAMBUCIL [Suspect]
     Active Substance: CHLORAMBUCIL
     Dosage: 10 MG/M2 (18 MG), CYCLIC (CUMULATIVE DOSE 504 MG)
     Route: 048
     Dates: start: 20091109, end: 20091115
  7. CHLORAMBUCIL [Suspect]
     Active Substance: CHLORAMBUCIL
     Dosage: 10 MG/M2 (18 MG), CYCLIC (CUMULATIVE DOSE 756 MG)
     Route: 048
     Dates: start: 20100105, end: 20100111
  8. CHLORAMBUCIL [Suspect]
     Active Substance: CHLORAMBUCIL
     Dosage: 10 MG/M2 (18 MG), CYCLIC (CUMULATIVE DOSE 882 MG)
     Route: 048
     Dates: start: 20100201, end: 20100207
  9. ALFADIOL [Concomitant]
     Active Substance: ALFACALCIDOL
     Indication: OSTEOPOROSIS PROPHYLAXIS
     Dosage: 0.25 UG, QD
     Route: 048
     Dates: start: 20100415
  10. CHLORAMBUCIL [Suspect]
     Active Substance: CHLORAMBUCIL
     Dosage: 10 MG/M2 (18 MG), CYCLIC (CUMULATIVE DOSE 378 MG)
     Route: 048
     Dates: start: 20091012, end: 20091018
  11. CHLORAMBUCIL [Suspect]
     Active Substance: CHLORAMBUCIL
     Dosage: 10 MG/M2 (18 MG), CYCLIC (CUMULATIVE DOSE 630 MG)
     Route: 048
     Dates: start: 20091207, end: 20091213
  12. OSTEOMAX [Concomitant]
     Indication: OSTEOPOROSIS PROPHYLAXIS
     Dosage: 70 MG, QW
     Route: 048
     Dates: start: 20100415

REACTIONS (1)
  - Autoimmune haemolytic anaemia [Recovered/Resolved]

NARRATIVE: CASE EVENT DATE: 20100414
